FAERS Safety Report 26097179 (Version 2)
Quarter: 2025Q4

REPORT INFORMATION
  Report Type: Report from Study
  Country: US (occurrence: US)
  Receive Date: 20251127
  Receipt Date: 20251230
  Transmission Date: 20260118
  Serious: Yes (Other)
  Sender: ABBVIE
  Company Number: US-ABBVIE-6555313

PATIENT
  Age: 72 Year
  Sex: Female

DRUGS (7)
  1. HUMIRA [Suspect]
     Active Substance: ADALIMUMAB
     Indication: Arthritis
     Dosage: CITRATE FREE, MISSED LAST DOSE IN 2025, FORM STRENGTH: 40 MG.
     Route: 058
     Dates: start: 2023, end: 2025
  2. HUMIRA [Suspect]
     Active Substance: ADALIMUMAB
     Indication: Uveitis
     Dosage: CITRATE FREE, FIRST ADMIN: 2025, FORM STRENGTH: 40 MG
     Route: 058
     Dates: start: 2025
  3. GEMTESA [Concomitant]
     Active Substance: VIBEGRON
     Indication: Hypertonic bladder
  4. ALVESCO [Concomitant]
     Active Substance: CICLESONIDE
     Indication: Infection prophylaxis
  5. LISINOPRIL [Concomitant]
     Active Substance: LISINOPRIL
     Indication: Blood pressure measurement
  6. ATORVASTATIN [Concomitant]
     Active Substance: ATORVASTATIN
     Indication: Blood cholesterol
     Dosage: 40 MILLIGRAM
  7. LEVOTHYROXINE [Concomitant]
     Active Substance: LEVOTHYROXINE
     Indication: Thyroid disorder
     Dosage: 0.025 MILLIGRAM

REACTIONS (8)
  - Endometrial cancer [Recovering/Resolving]
  - Vitreous floaters [Not Recovered/Not Resolved]
  - Spinal fusion acquired [Recovered/Resolved]
  - Vitreous floaters [Recovered/Resolved]
  - Pain [Recovered/Resolved]
  - Vaginal haemorrhage [Recovered/Resolved]
  - Uveitis [Not Recovered/Not Resolved]
  - Visual impairment [Unknown]

NARRATIVE: CASE EVENT DATE: 20230101
